FAERS Safety Report 19259639 (Version 1)
Quarter: 2021Q2

REPORT INFORMATION
  Report Type: Spontaneous
  Country: NZ (occurrence: NZ)
  Receive Date: 20210514
  Receipt Date: 20210514
  Transmission Date: 20210717
  Serious: Yes (Other)
  Sender: FDA-Public Use
  Company Number: NZ-POPULATION COUNCIL-2020TPC000188

PATIENT
  Sex: Female

DRUGS (1)
  1. JADELLE [Suspect]
     Active Substance: LEVONORGESTREL
     Indication: PRODUCT USED FOR UNKNOWN INDICATION
     Route: 059
     Dates: start: 2016, end: 2018

REACTIONS (2)
  - Complication of device removal [Unknown]
  - Device breakage [Unknown]

NARRATIVE: CASE EVENT DATE: 20201027
